FAERS Safety Report 13950568 (Version 2)
Quarter: 2017Q3

REPORT INFORMATION
  Report Type: Report from Study
  Country: DE (occurrence: DE)
  Receive Date: 20170908
  Receipt Date: 20170928
  Transmission Date: 20171128
  Serious: Yes (Other)
  Sender: FDA-Public Use
  Company Number: DE-GILEAD-2017-0292144

PATIENT
  Age: 56 Year
  Sex: Male

DRUGS (3)
  1. ADEFOVIR DIPIVOXIL. [Suspect]
     Active Substance: ADEFOVIR DIPIVOXIL
     Indication: CHRONIC HEPATITIS B
     Route: 065
  2. LAMIVUDINE. [Suspect]
     Active Substance: LAMIVUDINE
     Indication: CHRONIC HEPATITIS B
     Route: 065
  3. TENOFOVIR DISOPROXIL FUMARATE. [Suspect]
     Active Substance: TENOFOVIR DISOPROXIL FUMARATE
     Indication: CHRONIC HEPATITIS B
     Route: 065

REACTIONS (1)
  - Hepatitis B reactivation [Unknown]
